FAERS Safety Report 6808066-6 (Version None)
Quarter: 2010Q2

REPORT INFORMATION
  Report Type: 
  Country: None (occurrence: None)
  Receive Date: 20100629
  Receipt Date: 20090324
  Transmission Date: 20101027
  Serious: Yes (Other)
  Sender: FDA-Public Use
  Company Number: US-PFIZER INC-2009189338

PATIENT
  Sex: Female
  Weight: 67.131 kg

DRUGS (11)
  1. ARTHROTEC [Suspect]
     Indication: OSTEOARTHRITIS
  2. SYNTHROID [Concomitant]
     Dates: end: 20090301
  3. LEXAPRO [Concomitant]
  4. DARIFENACIN [Concomitant]
  5. TRAMADOL [Concomitant]
  6. CRESTOR [Concomitant]
  7. ESTRADERM [Concomitant]
  8. GLUCOSAMINE SULFATE [Concomitant]
  9. CALCIUM [Concomitant]
  10. VITAMIN D [Concomitant]
  11. LOVAZA [Concomitant]

REACTIONS (1)
  - GASTROINTESTINAL ULCER [None]
